FAERS Safety Report 21299915 (Version 2)
Quarter: 2022Q3

REPORT INFORMATION
  Report Type: Report from Study
  Country: GB (occurrence: GB)
  Receive Date: 20220906
  Receipt Date: 20220916
  Transmission Date: 20221027
  Serious: Yes (Death, Other)
  Sender: FDA-Public Use
  Company Number: GB-ROCHE-3164292

PATIENT
  Age: 62 Year
  Sex: Male
  Weight: 74.75 kg

DRUGS (22)
  1. BEVACIZUMAB [Suspect]
     Active Substance: BEVACIZUMAB
     Indication: Hepatocellular carcinoma
     Dosage: 1000 MG
     Dates: start: 20210817
  2. ATEZOLIZUMAB [Suspect]
     Active Substance: ATEZOLIZUMAB
     Indication: Hepatocellular carcinoma
     Dosage: 1200 MG
     Route: 041
     Dates: start: 20210817
  3. ASPIRIN [Concomitant]
     Active Substance: ASPIRIN
     Dates: start: 20220322
  4. BENZYDAMINE [Concomitant]
     Active Substance: BENZYDAMINE
     Dosage: AS NEEDED
     Route: 065
     Dates: start: 20211130
  5. CHLORPHENIRAMINE MALEATE [Concomitant]
     Active Substance: CHLORPHENIRAMINE MALEATE
     Indication: Pruritus
     Dates: start: 20211130
  6. DOMPERIDONE [Concomitant]
     Active Substance: DOMPERIDONE
     Dosage: AS NECESSARY
     Route: 065
     Dates: start: 20210817
  7. FERROUS FUMARATE [Concomitant]
     Active Substance: FERROUS FUMARATE
     Indication: Blood iron decreased
     Dates: start: 20210907
  8. GELCLAIR [Concomitant]
     Dosage: AS NECESSARY
     Dates: start: 20211130
  9. HYDROCORTISONE [Concomitant]
     Active Substance: HYDROCORTISONE
     Dosage: AS NECESSARY
     Route: 065
     Dates: start: 20210909
  10. HYDROCORTISONE [Concomitant]
     Active Substance: HYDROCORTISONE
     Dosage: UNK
     Route: 002
     Dates: start: 20220404
  11. MORPHINE [Concomitant]
     Active Substance: MORPHINE
     Dates: start: 20220624
  12. MORPHINE SULFATE [Concomitant]
     Active Substance: MORPHINE SULFATE
     Dosage: AS NECESSARY
     Dates: start: 20220624
  13. CHLORHEXIDINE HYDROCHLORIDE\NEOMYCIN SULFATE [Concomitant]
     Active Substance: CHLORHEXIDINE HYDROCHLORIDE\NEOMYCIN SULFATE
     Route: 045
     Dates: start: 20190909
  14. OMEPRAZOLE [Concomitant]
     Active Substance: OMEPRAZOLE
     Indication: Abdominal pain upper
     Dates: start: 20220706
  15. OXYCODONE [Concomitant]
     Active Substance: OXYCODONE
     Dates: start: 20220622, end: 20220624
  16. OXYCONTIN [Concomitant]
     Active Substance: OXYCODONE HYDROCHLORIDE
     Dates: start: 20211006
  17. OXYCODONE HYDROCHLORIDE [Concomitant]
     Active Substance: OXYCODONE HYDROCHLORIDE
     Dosage: AS NECESSARY
  18. ACETAMINOPHEN [Concomitant]
     Active Substance: ACETAMINOPHEN
     Dosage: AS NECESSARY
     Route: 065
     Dates: start: 20220302
  19. PRAMIPEXOLE [Concomitant]
     Active Substance: PRAMIPEXOLE
     Dates: start: 20220421
  20. PREGABALIN [Concomitant]
     Active Substance: PREGABALIN
     Dates: start: 20210513
  21. XYLOMETAZOLINE HYDROCHLORIDE [Concomitant]
     Active Substance: XYLOMETAZOLINE HYDROCHLORIDE
     Dates: start: 20220118
  22. ZOPICLONE [Concomitant]
     Active Substance: ZOPICLONE
     Dates: start: 20170705

REACTIONS (3)
  - Death [Fatal]
  - Ascites [Recovering/Resolving]
  - Hepatic function abnormal [Recovered/Resolved]

NARRATIVE: CASE EVENT DATE: 20220630
